FAERS Safety Report 4626978-9 (Version None)
Quarter: 2005Q1

REPORT INFORMATION
  Report Type: 
  Country: None (occurrence: None)
  Receive Date: 20050331
  Receipt Date: 20050321
  Transmission Date: 20050727
  Serious: Yes (Death, Life-Threatening, Hospitalization, Other)
  Sender: FDA-Public Use
  Company Number: 211986

PATIENT
  Age: 54 Year
  Sex: Female
  Weight: 59 kg

DRUGS (19)
  1. RITUXIMAB(RITUXIMAB) CONC FOR SOLUTION FOR INFUSION [Suspect]
     Indication: RHEUMATOID ARTHRITIS
  2. METHYLPREDNISOLONE [Suspect]
  3. PREDNISONE [Suspect]
  4. PREVACID [Concomitant]
  5. FOSAMAX [Concomitant]
  6. CALTRATE (CALCIUM CARBONATE) [Concomitant]
  7. TUMS (CALCIUM CARBONATE) [Concomitant]
  8. MULTIVITAMIN (MULTIVITAMINS NOS) [Concomitant]
  9. ATENOLOL [Concomitant]
  10. METHOTREXATE [Concomitant]
  11. PREDNISONE [Concomitant]
  12. ADVIL [Concomitant]
  13. FOLIC ACID [Concomitant]
  14. VICODIN (HYDROCODONE BITARTRATE, ACETAMINOPHEN) [Concomitant]
  15. VICODIN [Concomitant]
  16. FLEXERIL (CYCLOBENAZAPRINE HYDROCHLORIDE) [Concomitant]
  17. GLUCOPHAGE [Concomitant]
  18. MORPHINE [Concomitant]
  19. ALBUTEROL (ALBUTEROL SULFATE, ALBUTEROL) [Concomitant]

REACTIONS (31)
  - BACK PAIN [None]
  - BLINDNESS [None]
  - BLOOD IMMUNOGLOBULIN G DECREASED [None]
  - BLOOD IMMUNOGLOBULIN M DECREASED [None]
  - BLOOD URINE PRESENT [None]
  - CEREBRAL INFARCTION [None]
  - CLOSTRIDIAL INFECTION [None]
  - DISORIENTATION [None]
  - DYSPNOEA [None]
  - FATIGUE [None]
  - HAEMATOCRIT DECREASED [None]
  - HAEMOGLOBIN DECREASED [None]
  - HERPES VIRUS INFECTION [None]
  - IMMUNE SYSTEM DISORDER [None]
  - LETHARGY [None]
  - LUNG INFILTRATION [None]
  - METABOLIC ACIDOSIS [None]
  - NERVOUS SYSTEM DISORDER [None]
  - PLATELET COUNT DECREASED [None]
  - RESPIRATORY ACIDOSIS [None]
  - RESPIRATORY DISORDER [None]
  - RESPIRATORY RATE DECREASED [None]
  - RHONCHI [None]
  - SEPTIC SHOCK [None]
  - SINUS TACHYCARDIA [None]
  - SINUSITIS [None]
  - SKIN DISORDER [None]
  - STAPHYLOCOCCAL INFECTION [None]
  - SWELLING [None]
  - URINE KETONE BODY [None]
  - VOMITING [None]
